FAERS Safety Report 23436472 (Version 1)
Quarter: 2024Q1

REPORT INFORMATION
  Report Type: Spontaneous
  Country: ES (occurrence: None)
  Receive Date: 20240124
  Receipt Date: 20240124
  Transmission Date: 20240410
  Serious: Yes (Other)
  Sender: FDA-Public Use
  Company Number: 2024A012039

PATIENT
  Age: 66 Year
  Sex: Female

DRUGS (2)
  1. SYMBICORT [Interacting]
     Active Substance: BUDESONIDE\FORMOTEROL FUMARATE DIHYDRATE
     Route: 055
     Dates: start: 202312, end: 20231228
  2. FORMOTEROL FUMARATE [Interacting]
     Active Substance: FORMOTEROL FUMARATE
     Route: 055
     Dates: start: 202312, end: 20231228

REACTIONS (3)
  - Condition aggravated [Recovered/Resolved]
  - Bronchospasm [Recovered/Resolved]
  - Product substitution error [Recovered/Resolved]

NARRATIVE: CASE EVENT DATE: 20231201
